FAERS Safety Report 8193535-X (Version None)
Quarter: 2012Q1

REPORT INFORMATION
  Report Type: 
  Country: None (occurrence: None)
  Receive Date: 20120308
  Receipt Date: 20120224
  Transmission Date: 20120608
  Serious: Yes (Hospitalization)
  Sender: FDA-Public Use
  Company Number: GB-ROCHE-1043471

PATIENT
  Age: 42 Year
  Sex: Female
  Weight: 57.15 kg

DRUGS (8)
  1. TRETINOIN [Suspect]
     Indication: ACUTE PROMYELOCYTIC LEUKAEMIA
     Route: 048
     Dates: start: 20120206, end: 20120214
  2. DEXAMETHASONE [Concomitant]
  3. ZOPICLONE [Concomitant]
  4. GRANISETRON [Concomitant]
  5. PIPERACILLIN AND TAZOBACTAM [Concomitant]
  6. RASBURICASE [Concomitant]
  7. OMEPRAZOLE [Concomitant]
  8. FUROSEMIDE [Concomitant]

REACTIONS (3)
  - PYREXIA [None]
  - SINUS BRADYCARDIA [None]
  - CREPITATIONS [None]
